FAERS Safety Report 5163266-9 (Version None)
Quarter: 2006Q4

REPORT INFORMATION
  Report Type: 
  Country: None (occurrence: None)
  Receive Date: 20061204
  Receipt Date: 20061124
  Transmission Date: 20070319
  Serious: Yes (Other)
  Sender: FDA-Public Use
  Company Number: US-AMGEN-US201249

PATIENT
  Sex: Female

DRUGS (11)
  1. NEUPOGEN [Suspect]
     Indication: AGRANULOCYTOSIS
     Dates: start: 20051201
  2. ASPIRIN [Concomitant]
  3. NORVASC [Concomitant]
  4. TOPROL-XL [Concomitant]
  5. WELLBUTRIN [Concomitant]
  6. PLAVIX [Concomitant]
  7. SYNTHROID [Concomitant]
  8. MELATONIN [Concomitant]
  9. PRAVACHOL [Concomitant]
  10. OSCAL [Concomitant]
  11. PRILOSEC [Concomitant]

REACTIONS (1)
  - ACUTE MYELOID LEUKAEMIA [None]
